FAERS Safety Report 24224458 (Version 1)
Quarter: 2024Q3

REPORT INFORMATION
  Report Type: Spontaneous
  Country: CN (occurrence: CN)
  Receive Date: 20240819
  Receipt Date: 20240819
  Transmission Date: 20241017
  Serious: Yes (Other)
  Sender: ELI LILLY AND CO
  Company Number: CN-ELI_LILLY_AND_COMPANY-CN202408004975

PATIENT
  Age: 71 Year
  Sex: Female
  Weight: 52.5 kg

DRUGS (2)
  1. HUMALOG MIX75/25 [Suspect]
     Active Substance: INSULIN LISPRO
     Indication: Diabetes mellitus
     Dosage: 14 U, DAILY
     Route: 058
  2. HUMALOG MIX75/25 [Suspect]
     Active Substance: INSULIN LISPRO
     Dosage: 08 U, EACH EVENING
     Route: 058

REACTIONS (4)
  - Deafness unilateral [Unknown]
  - Hypertension [Unknown]
  - Cardiac disorder [Unknown]
  - Eye disorder [Unknown]
